FAERS Safety Report 7967484-3 (Version None)
Quarter: 2011Q4

REPORT INFORMATION
  Report Type: 
  Country: None (occurrence: None)
  Receive Date: 20111209
  Receipt Date: 20101119
  Transmission Date: 20120403
  Serious: No
  Sender: FDA-Public Use
  Company Number: US-GLAXOSMITHKLINE-A0897098A

PATIENT
  Age: 54 Year
  Sex: Male

DRUGS (1)
  1. AVANDAMET [Suspect]
     Indication: TYPE 2 DIABETES MELLITUS
     Route: 048
     Dates: start: 20070108, end: 20100325

REACTIONS (5)
  - HEART RATE INCREASED [None]
  - DYSPNOEA [None]
  - PALPITATIONS [None]
  - CARDIOVASCULAR DISORDER [None]
  - CHEST PAIN [None]
